FAERS Safety Report 6973502-1 (Version None)
Quarter: 2010Q3

REPORT INFORMATION
  Report Type: 
  Country: None (occurrence: None)
  Receive Date: 20100909
  Receipt Date: 20100906
  Transmission Date: 20110219
  Serious: Yes (Other)
  Sender: FDA-Public Use
  Company Number: GB-BRISTOL-MYERS SQUIBB COMPANY-15135205

PATIENT
  Age: 83 Year
  Sex: Female

DRUGS (1)
  1. ABILIFY [Suspect]
     Dosage: ROUTE=PEG TUBE.

REACTIONS (1)
  - FOOD INTOLERANCE [None]
